FAERS Safety Report 6504477-7 (Version None)
Quarter: 2009Q4

REPORT INFORMATION
  Report Type: 
  Country: None (occurrence: None)
  Receive Date: 20091215
  Receipt Date: 20091204
  Transmission Date: 20100525
  Serious: Yes (Hospitalization)
  Sender: FDA-Public Use
  Company Number: 2009AC000384

PATIENT
  Age: 53 Year
  Sex: Female

DRUGS (22)
  1. DIGOXIN [Suspect]
     Dosage: 0.125 MG; PO
     Route: 048
     Dates: start: 20071101, end: 20080401
  2. PREMARIN [Concomitant]
  3. CHANTIX [Concomitant]
  4. HYDROCODONE [Concomitant]
  5. CYCLOBENZAPRINE [Concomitant]
  6. ASPIRIN [Concomitant]
  7. LISINOPRIL [Concomitant]
  8. TYLENOL (CAPLET) [Concomitant]
  9. WELLBUTRIN [Concomitant]
  10. XANAX [Concomitant]
  11. FLECAINIDE ACETATE [Concomitant]
  12. FLEXERIL [Concomitant]
  13. TRAMADOL [Concomitant]
  14. LORTAB [Concomitant]
  15. ZITHROMAX [Concomitant]
  16. ALPRAZOLAM [Concomitant]
  17. FLECAINIDE ACETATE [Concomitant]
  18. BUPROPION HCL [Concomitant]
  19. LEXAPRO [Concomitant]
  20. LYRICA [Concomitant]
  21. CIPROFLOXACIN [Concomitant]
  22. PHENAZOPYRIDIN [Concomitant]

REACTIONS (21)
  - AMNESIA [None]
  - ANXIETY [None]
  - ATRIAL FIBRILLATION [None]
  - CERVICAL SPINAL STENOSIS [None]
  - CONDITION AGGRAVATED [None]
  - CORONARY ARTERY DISEASE [None]
  - DEFORMITY [None]
  - DYSPNOEA [None]
  - ECONOMIC PROBLEM [None]
  - GENERAL PHYSICAL CONDITION ABNORMAL [None]
  - GOUTY ARTHRITIS [None]
  - HYPERHIDROSIS [None]
  - LIPOMA [None]
  - MENTAL DISORDER [None]
  - OSTEOARTHRITIS [None]
  - OSTEOPOROSIS POSTMENOPAUSAL [None]
  - PAIN [None]
  - PANIC ATTACK [None]
  - PNEUMONIA [None]
  - PULMONARY FIBROSIS [None]
  - SPINAL OSTEOARTHRITIS [None]
